FAERS Safety Report 10183539 (Version 2)
Quarter: 2014Q2

REPORT INFORMATION
  Report Type: Report from Study
  Country: CA (occurrence: CA)
  Receive Date: 20140520
  Receipt Date: 20140520
  Transmission Date: 20141212
  Serious: Yes (Hospitalization, Other)
  Sender: FDA-Public Use
  Company Number: CA-ABBVIE-14P-028-1233760-00

PATIENT
  Age: 59 Year
  Sex: Male
  Weight: 93.07 kg

DRUGS (3)
  1. HUMIRA [Suspect]
     Indication: PSORIATIC ARTHROPATHY
     Route: 058
     Dates: start: 20111216, end: 201403
  2. HUMIRA [Suspect]
     Route: 058
     Dates: start: 20140421
  3. MEDICATION (NOS) [Concomitant]
     Indication: HYPERTENSION

REACTIONS (3)
  - Arterial occlusive disease [Recovering/Resolving]
  - Pulmonary pain [Recovering/Resolving]
  - Dyspnoea [Recovering/Resolving]
